FAERS Safety Report 10061985 (Version 1)
Quarter: 2014Q2

REPORT INFORMATION
  Report Type: Spontaneous
  Country: US (occurrence: None)
  Receive Date: 20140404
  Receipt Date: 20140404
  Transmission Date: 20141212
  Serious: Yes (Other)
  Sender: FDA-Public Use
  Company Number: None

PATIENT
  Age: 25 Year
  Sex: Male
  Weight: 90.72 kg

DRUGS (2)
  1. DEXMETHYLPHENIDATE [Suspect]
     Route: 048
     Dates: start: 201402, end: 201403
  2. DEXMETHYLPHENIDATE [Suspect]
     Route: 048
     Dates: start: 201402, end: 201403

REACTIONS (4)
  - Product substitution issue [None]
  - Dizziness [None]
  - Dizziness [None]
  - Nausea [None]
